FAERS Safety Report 7338328-8 (Version None)
Quarter: 2011Q1

REPORT INFORMATION
  Report Type: 
  Country: None (occurrence: None)
  Receive Date: 20110224
  Receipt Date: 20110211
  Transmission Date: 20110831
  Serious: Yes (Hospitalization)
  Sender: FDA-Public Use
  Company Number: GER/GER/10/0016214

PATIENT
  Age: 84 Year
  Sex: Female
  Weight: 55 kg

DRUGS (5)
  1. CITALOPRAM (CITALOPRAM) [Suspect]
     Indication: DEPRESSION
     Dosage: 20 MG, 1 IN 1 D, ORAL
     Route: 048
     Dates: start: 20100301, end: 20100816
  2. FALITHROM (PHENPROCOUMON) [Suspect]
     Indication: ATRIAL FIBRILLATION
     Dosage: 2.78 MG, 1 IN 1 D, ORAL
     Route: 048
     Dates: start: 20100810, end: 20100817
  3. MOLSIDOMINE (MOLSIDOMINE) [Suspect]
     Indication: ANGINA PECTORIS
     Dosage: 8 MG, 1 IN 1 D, ORAL
     Route: 048
     Dates: start: 20000101
  4. BELOC-ZOK MITE (METOPROLOL SUCCINATE) [Suspect]
     Indication: HYPERTENSION
     Dosage: 47.5 , 95 MG, 2 IN 1 D, ORAL
     Route: 048
     Dates: start: 20100904
  5. BELOC-ZOK MITE (METOPROLOL SUCCINATE) [Suspect]
     Indication: HYPERTENSION
     Dosage: 47.5 , 95 MG, 2 IN 1 D, ORAL
     Route: 048
     Dates: start: 20000101

REACTIONS (17)
  - LIVER DISORDER [None]
  - PROTHROMBIN TIME PROLONGED [None]
  - HELICOBACTER TEST POSITIVE [None]
  - DECREASED APPETITE [None]
  - NAUSEA [None]
  - CHOLANGITIS [None]
  - OESOPHAGOGASTRODUODENOSCOPY [None]
  - ARRHYTHMIA [None]
  - PRESYNCOPE [None]
  - HEPATITIS TOXIC [None]
  - PANCREATITIS ACUTE [None]
  - DIARRHOEA HAEMORRHAGIC [None]
  - CLOSTRIDIUM DIFFICILE COLITIS [None]
  - ATRIAL FIBRILLATION [None]
  - FATIGUE [None]
  - REFLUX OESOPHAGITIS [None]
  - SUICIDAL IDEATION [None]
